FAERS Safety Report 18495349 (Version 4)
Quarter: 2024Q2

REPORT INFORMATION
  Report Type: Spontaneous
  Country: CA (occurrence: CA)
  Receive Date: 20201112
  Receipt Date: 20240507
  Transmission Date: 20240716
  Serious: Yes (Hospitalization, Other)
  Sender: FDA-Public Use
  Company Number: CA-AUROBINDO-AUR-APL-2020-055836

PATIENT
  Age: 48 Year
  Sex: Female
  Weight: 102 kg

DRUGS (4)
  1. AMLODIPINE [Suspect]
     Active Substance: AMLODIPINE BESYLATE
     Indication: Product used for unknown indication
     Dosage: 252 MILLIGRAM
     Route: 048
  2. PERINDOPRIL [Suspect]
     Active Substance: PERINDOPRIL
     Indication: Product used for unknown indication
     Dosage: 180 MILLIGRAM
     Route: 065
  3. NALOXONE [Suspect]
     Active Substance: NALOXONE
     Indication: Vasoplegia syndrome
     Dosage: 200 MICROGRAM, ALIQUOTS EVERY THREE TO FIVE MINUTES TO A TOTAL DOSE OF 1.6MG
     Route: 042
  4. NALOXONE [Suspect]
     Active Substance: NALOXONE
     Indication: Shock
     Dosage: TOTAL DOSE, APPROXIMFLTELY 10.6 MG
     Route: 042

REACTIONS (13)
  - Paralysis [Recovering/Resolving]
  - Sedation [Recovering/Resolving]
  - Vasoplegia syndrome [Recovered/Resolved]
  - Hypoxia [Recovered/Resolved]
  - Intentional overdose [Recovered/Resolved]
  - Toxicity to various agents [Recovered/Resolved]
  - Impaired insulin secretion [Recovered/Resolved]
  - Insulin resistance [Recovered/Resolved]
  - Rebound effect [Recovered/Resolved]
  - Hypotension [Recovered/Resolved]
  - Shock [Recovered/Resolved]
  - Overdose [Recovered/Resolved]
  - Off label use [Recovered/Resolved]
